FAERS Safety Report 16160962 (Version 3)
Quarter: 2020Q2

REPORT INFORMATION
  Report Type: Spontaneous
  Country: JP (occurrence: JP)
  Receive Date: 20190405
  Receipt Date: 20200615
  Transmission Date: 20200713
  Serious: Yes (Death, Hospitalization, Other)
  Sender: FDA-Public Use
  Company Number: JP-AMGEN-JPNSP2018055262

PATIENT
  Age: 77 Year
  Sex: Female
  Weight: 48 kg

DRUGS (6)
  1. KYPROLIS [Suspect]
     Active Substance: CARFILZOMIB
     Dosage: 45 MG/M2 (017/11/23,11/24,11/30,12/1,12/7,12/8,12/21,12/22,12/28,12/29,2018/1/4,1/5)
     Route: 041
     Dates: start: 20171123, end: 20180105
  2. KYPROLIS [Suspect]
     Active Substance: CARFILZOMIB
     Indication: PLASMA CELL MYELOMA
     Dosage: 20 MILLIGRAM/SQ. METER, QD
     Route: 041
     Dates: start: 20171024, end: 20171025
  3. KYPROLIS [Suspect]
     Active Substance: CARFILZOMIB
     Dosage: 56 MG/M2 (2017/10/31,11/1,11/7,11/8)
     Route: 041
     Dates: start: 20171031, end: 20171108
  4. DEXAMETHASONE. [Concomitant]
     Active Substance: DEXAMETHASONE
     Indication: PLASMA CELL MYELOMA
     Dosage: 8 MG (2017/10/24,10/25,10/31,11/1,11/7,11/8,11/23,11/24,11/30,12/1,12/7,12/8,12/21,12/22)
     Route: 065
     Dates: start: 20171024, end: 20171222
  5. DEXAMETHASONE. [Concomitant]
     Active Substance: DEXAMETHASONE
     Dosage: 8 MG (12/28,12/29,2018/1/4,1/5)
     Route: 065
     Dates: start: 20171228, end: 20180105
  6. ACICLOVIR [ACICLOVIR SODIUM] [Concomitant]
     Active Substance: ACYCLOVIR SODIUM
     Indication: ANTIVIRAL PROPHYLAXIS
     Dosage: 400 MILLIGRAM, QD
     Route: 065

REACTIONS (2)
  - Neutrophilic dermatosis [Recovered/Resolved]
  - Myelodysplastic syndrome [Fatal]

NARRATIVE: CASE EVENT DATE: 20171113
